FAERS Safety Report 4355115-3 (Version None)
Quarter: 2004Q2

REPORT INFORMATION
  Report Type: 
  Country: None (occurrence: None)
  Receive Date: 20040504
  Receipt Date: 20040419
  Transmission Date: 20050107
  Serious: Yes (Hospitalization)
  Sender: FDA-Public Use
  Company Number: 2004CG00711

PATIENT
  Age: 34 Year
  Sex: Female
  Weight: 50 kg

DRUGS (18)
  1. FELODIPINE [Suspect]
     Dosage: 5 MG DAILY PO
     Route: 048
     Dates: start: 20040306, end: 20040318
  2. MOPRAL [Suspect]
     Dosage: 20 MG DAILY PO
     Route: 048
     Dates: start: 20040205, end: 20040318
  3. DALACINE - PER ORAL [Suspect]
     Indication: EXTREMITY NECROSIS
     Dates: start: 20040201, end: 20040201
  4. DALACINE - PER ORAL [Suspect]
     Indication: EXTREMITY NECROSIS
     Dosage: 400 MG TID PO
     Route: 048
     Dates: start: 20040301, end: 20040318
  5. TRACLEER [Suspect]
     Dosage: 62.5 MG BID PO
     Route: 048
     Dates: start: 20040306, end: 20040318
  6. DEROXAT [Suspect]
     Dosage: 20 MG DAILY PO
     Route: 048
     Dates: start: 20040205, end: 20040318
  7. ILOMEDINE [Suspect]
     Indication: EXTREMITY NECROSIS
     Dates: start: 20040205, end: 20040308
  8. CIPROFLOXACIN [Suspect]
     Indication: STAPHYLOCOCCAL INFECTION
     Dates: start: 20040301, end: 20040318
  9. MORPHINE [Suspect]
     Dates: start: 20040210, end: 20040318
  10. ACTISKENAN [Suspect]
     Dates: start: 20030208, end: 20040318
  11. KARDEGIC /FRA/ [Suspect]
     Dates: start: 20040309, end: 20040318
  12. ZOLPIDEM TARTRATE [Suspect]
     Dates: start: 20040302, end: 20040318
  13. PYOSTACINE [Suspect]
     Dates: start: 20040201, end: 20040318
  14. DILTIAZEM HCL [Concomitant]
  15. MICROVAL [Concomitant]
  16. NICORETTE PATCH [Concomitant]
  17. TRANXENE [Concomitant]
  18. FORLAX [Concomitant]

REACTIONS (15)
  - ANAEMIA [None]
  - ASTHENIA [None]
  - DRUG INEFFECTIVE [None]
  - DYSPNOEA [None]
  - FACE OEDEMA [None]
  - GAMMA-GLUTAMYLTRANSFERASE INCREASED [None]
  - HYPOXIA [None]
  - OEDEMA [None]
  - OEDEMA PERIPHERAL [None]
  - PERICARDIAL EFFUSION [None]
  - PLEURAL EFFUSION [None]
  - POLYSEROSITIS [None]
  - PYREXIA [None]
  - STAPHYLOCOCCAL INFECTION [None]
  - WEIGHT INCREASED [None]
